FAERS Safety Report 8896620 (Version 2)
Quarter: 2012Q4

REPORT INFORMATION
  Report Type: 
  Country: PL (occurrence: PL)
  Receive Date: 20121108
  Receipt Date: 20121113
  Transmission Date: 20130627
  Serious: Yes (Death, Hospitalization)
  Sender: FDA-Public Use
  Company Number: PHHY2012PL101295

PATIENT
  Sex: Female

DRUGS (1)
  1. DOXORUBICIN [Suspect]
     Indication: BREAST CANCER
     Dosage: 100 mg, UNK
     Dates: start: 20100112

REACTIONS (8)
  - Malignant neoplasm progression [Fatal]
  - Bone pain [Fatal]
  - General physical health deterioration [Fatal]
  - Cardiotoxicity [Unknown]
  - Ejection fraction decreased [Unknown]
  - Tachycardia [Unknown]
  - Acute respiratory failure [Unknown]
  - Dyspnoea [Unknown]
